FAERS Safety Report 6734161-6 (Version None)
Quarter: 2010Q2

REPORT INFORMATION
  Report Type: 
  Country: None (occurrence: None)
  Receive Date: 20100520
  Receipt Date: 20100512
  Transmission Date: 20101027
  Serious: Yes (Disabling)
  Sender: FDA-Public Use
  Company Number: GXKR2010PL05392

PATIENT
  Age: 11 Year
  Sex: Female

DRUGS (2)
  1. METHOTREXATE [Suspect]
     Indication: OSTEOSARCOMA METASTATIC
     Dosage: UNK
     Route: 065
     Dates: end: 20050401
  2. ETOPOSIDE [Suspect]
     Indication: OSTEOSARCOMA METASTATIC
     Route: 065

REACTIONS (2)
  - FANCONI SYNDROME [None]
  - RENAL FAILURE CHRONIC [None]
